FAERS Safety Report 11272551 (Version 1)
Quarter: 2015Q3

REPORT INFORMATION
  Report Type: Spontaneous
  Country: None (occurrence: None)
  Receive Date: 20150714
  Receipt Date: 20150714
  Transmission Date: 20151125
  Serious: No
  Sender: FDA-Public Use
  Company Number: None

PATIENT

DRUGS (3)
  1. PRAMIPEXOLE DIHYDROCHLORIDE 1 MG [Suspect]
     Active Substance: PRAMIPEXOLE DIHYDROCHLORIDE
     Indication: DEPRESSION
     Dosage: 1 MG TITRATED DOSE: START 1/2 TAB 1 MG - 3 MG TID
     Route: 048
     Dates: start: 20141013, end: 20141120
  2. PRAMIPEXOLE DIHYDROCHLORIDE 1 MG [Suspect]
     Active Substance: PRAMIPEXOLE DIHYDROCHLORIDE
     Indication: OFF LABEL USE
     Dosage: 1 MG TITRATED DOSE: START 1/2 TAB 1 MG - 3 MG TID
     Route: 048
     Dates: start: 20141013, end: 20141120
  3. PRAMIPEXOLE DIHYDROCHLORIDE 1 MG [Suspect]
     Active Substance: PRAMIPEXOLE DIHYDROCHLORIDE
     Indication: ANXIETY
     Dosage: 1 MG TITRATED DOSE: START 1/2 TAB 1 MG - 3 MG TID
     Route: 048
     Dates: start: 20141013, end: 20141120

REACTIONS (2)
  - Tremor [None]
  - Hypomania [None]
